FAERS Safety Report 17899207 (Version 1)
Quarter: 2020Q2

REPORT INFORMATION
  Report Type: Spontaneous
  Country: ES (occurrence: ES)
  Receive Date: 20200616
  Receipt Date: 20200616
  Transmission Date: 20200714
  Serious: Yes (Hospitalization)
  Sender: FDA-Public Use
  Company Number: ES-ROCHE-2619662

PATIENT
  Age: 55 Year
  Sex: Female

DRUGS (5)
  1. OMEPRAZOL [OMEPRAZOLE] [Concomitant]
     Active Substance: OMEPRAZOLE
     Route: 048
     Dates: start: 201509, end: 20200408
  2. OCREVUS [Suspect]
     Active Substance: OCRELIZUMAB
     Indication: MULTIPLE SCLEROSIS
     Route: 042
     Dates: start: 20190514, end: 20191212
  3. NATECAL [Concomitant]
     Active Substance: CALCIUM CARBONATE\CHOLECALCIFEROL
     Route: 048
     Dates: start: 201504, end: 20200408
  4. GABAPENTINA [Concomitant]
     Active Substance: GABAPENTIN
     Route: 048
     Dates: start: 201911, end: 20200408
  5. IBUPROFENO [Concomitant]
     Active Substance: IBUPROFEN
     Route: 048
     Dates: start: 201906, end: 20200408

REACTIONS (1)
  - COVID-19 pneumonia [Recovering/Resolving]

NARRATIVE: CASE EVENT DATE: 20200305
